FAERS Safety Report 5011863-3 (Version None)
Quarter: 2006Q2

REPORT INFORMATION
  Report Type: 
  Country: None (occurrence: None)
  Receive Date: 20060526
  Receipt Date: 20060522
  Transmission Date: 20061013
  Serious: Yes (Death, Hospitalization, Other)
  Sender: FDA-Public Use
  Company Number: US-AVENTIS-200614591US

PATIENT
  Age: 72 Year
  Sex: Female

DRUGS (2)
  1. LANTUS [Suspect]
     Dosage: DOSE: UNK
     Dates: end: 20060512
  2. UNKNOWN DRUG [Concomitant]
     Dosage: DOSE: UNK

REACTIONS (6)
  - CLOSTRIDIAL INFECTION [None]
  - COLITIS [None]
  - DEATH [None]
  - DIARRHOEA [None]
  - RENAL FAILURE [None]
  - STENT PLACEMENT [None]
